FAERS Safety Report 21816103 (Version 1)
Quarter: 2023Q1

REPORT INFORMATION
  Report Type: Spontaneous
  Country: US (occurrence: None)
  Receive Date: 20230103
  Receipt Date: 20230103
  Transmission Date: 20230417
  Serious: Yes (Hospitalization)
  Sender: FDA-Public Use
  Company Number: None

PATIENT
  Sex: Male

DRUGS (1)
  1. ADVATE [Suspect]
     Active Substance: ANTIHEMOPHILIC FACTOR, HUMAN RECOMBINANT
     Indication: Rectal haemorrhage
     Dosage: OTHER STRENGTH : 2000;?OTHER QUANTITY : 2000 UNITS;?FREQUENCY : EVERY 12 HOURS;?
     Route: 042
     Dates: start: 202212

REACTIONS (1)
  - Haemorrhoid operation [None]
